FAERS Safety Report 4869733-7 (Version None)
Quarter: 2005Q4

REPORT INFORMATION
  Report Type: 
  Country: None (occurrence: None)
  Receive Date: 20051223
  Receipt Date: 20051206
  Transmission Date: 20060501
  Serious: Yes (Other)
  Sender: FDA-Public Use
  Company Number: US200511000066

PATIENT
  Sex: Female

DRUGS (7)
  1. FORTEO [Suspect]
     Indication: OSTEOPOROSIS
     Dates: start: 20040501, end: 20051101
  2. FORTEO PEN (250 MCG/ML (FORTEO PEN 250MCG/ML (3ML)) [Concomitant]
  3. PEN,DISPOSABLE [Concomitant]
  4. COZAAR [Concomitant]
  5. ZYRTEC-D 12 HOUR [Concomitant]
  6. TYLENOL W/ CODEINE [Concomitant]
  7. PREMPRO [Concomitant]

REACTIONS (4)
  - HYPOAESTHESIA [None]
  - PARAESTHESIA [None]
  - PHARMACEUTICAL PRODUCT COMPLAINT [None]
  - TRANSIENT ISCHAEMIC ATTACK [None]
